FAERS Safety Report 24846556 (Version 1)
Quarter: 2025Q1

REPORT INFORMATION
  Report Type: Spontaneous
  Country: US (occurrence: US)
  Receive Date: 20250115
  Receipt Date: 20250115
  Transmission Date: 20250408
  Serious: No
  Sender: MERCK
  Company Number: US-009507513-2412USA007543

PATIENT
  Age: 60 Year
  Sex: Male

DRUGS (1)
  1. KEYTRUDA [Suspect]
     Active Substance: PEMBROLIZUMAB
     Dosage: 200 MILLIGRAM, EVERY 3 WEEKS (Q3W)
     Route: 042

REACTIONS (3)
  - Vascular access complication [Unknown]
  - Product administration interrupted [Unknown]
  - Device connection issue [Unknown]

NARRATIVE: CASE EVENT DATE: 20241209
